FAERS Safety Report 4263413-7 (Version None)
Quarter: 2004Q1

REPORT INFORMATION
  Report Type: 
  Country: None (occurrence: None)
  Receive Date: 20040104
  Receipt Date: 20040104
  Transmission Date: 20041129
  Serious: No
  Sender: FDA-Public Use
  Company Number: None

PATIENT
  Age: 24 Year
  Sex: Female
  Weight: 68.4932 kg

DRUGS (1)
  1. DEPO-PROVERA [Suspect]
     Dosage: 150 MG Q 13 WEEKS IM
     Route: 030
     Dates: start: 19980529, end: 20030912

REACTIONS (5)
  - DRUG EXPOSURE DURING PREGNANCY [None]
  - DRUG INEFFECTIVE [None]
  - MEDICATION ERROR [None]
  - PREGNANCY WITH INJECTABLE CONTRACEPTIVE [None]
  - TREATMENT NONCOMPLIANCE [None]
